FAERS Safety Report 4578023-1 (Version None)
Quarter: 2005Q1

REPORT INFORMATION
  Report Type: 
  Country: None (occurrence: None)
  Receive Date: 20050202
  Receipt Date: 20050202
  Transmission Date: 20050727
  Serious: Yes (Other)
  Sender: FDA-Public Use
  Company Number: None

PATIENT
  Age: 62 Year
  Sex: Male

DRUGS (1)
  1. LOPID [Suspect]
     Indication: HYPERLIPIDAEMIA
     Dosage: 600 MG PO BID
     Route: 048
     Dates: start: 20030124, end: 20040801

REACTIONS (1)
  - GASTROINTESTINAL DISORDER [None]
